FAERS Safety Report 6462559-2 (Version None)
Quarter: 2009Q4

REPORT INFORMATION
  Report Type: 
  Country: None (occurrence: None)
  Receive Date: 20091130
  Receipt Date: 20091118
  Transmission Date: 20100525
  Serious: Yes (Other)
  Sender: FDA-Public Use
  Company Number: PHEH2009US16262

PATIENT
  Sex: Male

DRUGS (2)
  1. CLOZARIL [Suspect]
  2. CLOZAPINE [Suspect]

REACTIONS (1)
  - NEOPLASM MALIGNANT [None]
